FAERS Safety Report 8720416 (Version 5)
Quarter: 2014Q4

REPORT INFORMATION
  Report Type: Spontaneous
  Country: US (occurrence: US)
  Receive Date: 20120813
  Receipt Date: 20141219
  Transmission Date: 20150529
  Serious: Yes (Life-Threatening, Hospitalization, Other)
  Sender: FDA-Public Use
  Company Number: US-ASTRAZENECA-2012SE56298

PATIENT
  Age: 72 Year
  Sex: Male

DRUGS (3)
  1. CRESTOR [Suspect]
     Active Substance: ROSUVASTATIN CALCIUM
     Route: 048
  2. TOPROL XL [Suspect]
     Active Substance: METOPROLOL SUCCINATE
     Route: 048
  3. ACCOLATE [Suspect]
     Active Substance: ZAFIRLUKAST
     Route: 048

REACTIONS (6)
  - Memory impairment [Unknown]
  - Osteoporosis [Unknown]
  - Coma [Unknown]
  - Blood pressure inadequately controlled [Unknown]
  - Malaise [Unknown]
  - Intentional product misuse [Unknown]
